FAERS Safety Report 24095528 (Version 1)
Quarter: 2024Q3

REPORT INFORMATION
  Report Type: Spontaneous
  Country: US (occurrence: None)
  Receive Date: 20240715
  Receipt Date: 20240715
  Transmission Date: 20241016
  Serious: Yes (Other)
  Sender: Public
  Company Number: None

PATIENT
  Age: 39 Year
  Sex: Female

DRUGS (1)
  1. DUPIXENT [Suspect]
     Active Substance: DUPILUMAB
     Dates: start: 20230921, end: 20240710

REACTIONS (3)
  - Arthralgia [None]
  - Myalgia [None]
  - Condition aggravated [None]

NARRATIVE: CASE EVENT DATE: 20240713
